FAERS Safety Report 7108513-9 (Version None)
Quarter: 2010Q4

REPORT INFORMATION
  Report Type: 
  Country: None (occurrence: None)
  Receive Date: 20101117
  Receipt Date: 20100825
  Transmission Date: 20110411
  Serious: No
  Sender: FDA-Public Use
  Company Number: A0873881A

PATIENT
  Sex: Male

DRUGS (3)
  1. VOTRIENT [Suspect]
     Dosage: 400MG TWICE PER DAY
     Route: 048
     Dates: start: 20100616
  2. UNSPECIFIED MEDICATION [Concomitant]
  3. NORVASC [Concomitant]

REACTIONS (2)
  - FATIGUE [None]
  - NAUSEA [None]
